FAERS Safety Report 4278108-3 (Version None)
Quarter: 2004Q1

REPORT INFORMATION
  Report Type: 
  Country: None (occurrence: None)
  Receive Date: 20040123
  Receipt Date: 20040116
  Transmission Date: 20041129
  Serious: Yes (Hospitalization)
  Sender: FDA-Public Use
  Company Number: FR-BRISTOL-MYERS SQUIBB COMPANY-12481651

PATIENT
  Age: 37 Year
  Sex: Female

DRUGS (4)
  1. COUMADIN [Suspect]
     Indication: PULMONARY EMBOLISM
     Dosage: PREVIOUS DOSE 5MG/DAY.
     Route: 048
  2. INNOHEP [Concomitant]
  3. ATARAX [Concomitant]
  4. DOLIPRANE [Concomitant]

REACTIONS (1)
  - NEUTROPENIA [None]
